FAERS Safety Report 20126098 (Version 2)
Quarter: 2022Q2

REPORT INFORMATION
  Report Type: Spontaneous
  Country: DE (occurrence: DE)
  Receive Date: 20211129
  Receipt Date: 20220412
  Transmission Date: 20220720
  Serious: Yes (Hospitalization)
  Sender: FDA-Public Use
  Company Number: DE-Merck Healthcare KGaA-9270071

PATIENT
  Age: 62 Year
  Sex: Female

DRUGS (61)
  1. PREDNISOLONE [Suspect]
     Active Substance: PREDNISOLONE
     Indication: Product used for unknown indication
     Dosage: UNK
  2. PREDNISOLONE [Suspect]
     Active Substance: PREDNISOLONE
     Indication: Product used for unknown indication
     Dosage: THERAPY START DATE: -MAY-2015
  3. VALSARTAN [Suspect]
     Active Substance: VALSARTAN
     Indication: Hypertension
     Dosage: UNK
     Dates: start: 20000120, end: 20000220
  4. VALSARTAN [Suspect]
     Active Substance: VALSARTAN
     Dosage: UNK, THERAPY START DATE: 20-APR-2000
  5. VALSARTAN [Suspect]
     Active Substance: VALSARTAN
     Dosage: UNK
     Dates: start: 20000220
  6. VALSARTAN [Suspect]
     Active Substance: VALSARTAN
     Dosage: UNK, APRIL 2012
  7. VALSARTAN [Suspect]
     Active Substance: VALSARTAN
     Indication: Hypertension
     Dosage: START DATE: JAN 2012
     Dates: end: 2012
  8. CIPROFLOXACIN [Suspect]
     Active Substance: CIPROFLOXACIN
     Indication: Product used for unknown indication
     Dosage: UNK, THERAPY START DATE: -DEC-2017
  9. DOXAZOSIN [Suspect]
     Active Substance: DOXAZOSIN MESYLATE
     Indication: Product used for unknown indication
     Dosage: UNK, THERAPY START DATE: -MAY-2018
  10. IBUPROFEN [Suspect]
     Active Substance: IBUPROFEN
     Indication: Product used for unknown indication
     Dosage: UNK, THERAPY START DATE:-APR-2014
     Dates: end: 2018
  11. HYDROCHLOROTHIAZIDE\VALSARTAN [Suspect]
     Active Substance: HYDROCHLOROTHIAZIDE\VALSARTAN
     Indication: Hypertension
     Dosage: UNK, THERAPY START DATE: 2012
  12. PANTOPRAZOLE [Suspect]
     Active Substance: PANTOPRAZOLE
     Indication: Product used for unknown indication
     Dosage: UNK, THERAPY START DATE: -MAY-2017
  13. FLUCONAZOLE [Suspect]
     Active Substance: FLUCONAZOLE
     Indication: Product used for unknown indication
     Dosage: UNK, THERAPY START DATE: 2018
  14. DOXYCYCLINE [Suspect]
     Active Substance: DOXYCYCLINE
     Indication: Product used for unknown indication
     Dosage: THERAPY START DATE: -JUN-2016
  15. LEVOTHYROXINE [Suspect]
     Active Substance: LEVOTHYROXINE
     Indication: Product used for unknown indication
     Dosage: UNK
  16. CLINDAMYCIN [Suspect]
     Active Substance: CLINDAMYCIN
     Indication: Product used for unknown indication
     Dosage: UNK, THERAPY START DATE:01-JAN-2014
  17. CLINDAMYCIN [Suspect]
     Active Substance: CLINDAMYCIN
     Dosage: UNK, THERAPY START DATE:-MAR-2015
  18. CEFPODOXIME [Suspect]
     Active Substance: CEFPODOXIME
     Indication: Product used for unknown indication
     Dosage: UNK, THERAPY START DATE:-SEP-2014
  19. CEFPODOXIME [Suspect]
     Active Substance: CEFPODOXIME
     Dosage: UNK, THERAPY START DATE: -NOV-2013
  20. AMPHOTERICIN B [Suspect]
     Active Substance: AMPHOTERICIN B
     Indication: Product used for unknown indication
     Dosage: UNK, THERAPY START DATE: -APR-2018
  21. CLIOQUINOL\FLUMETHASONE [Suspect]
     Active Substance: CLIOQUINOL\FLUMETHASONE
     Indication: Product used for unknown indication
     Dosage: UNK, THERAPY START DATE:-JAN-2014
  22. RASILEZ [Suspect]
     Active Substance: ALISKIREN
     Indication: Cardiac failure
     Dosage: UNK, THERAPY START DATE:-JAN-2012
  23. RASILEZ [Suspect]
     Active Substance: ALISKIREN
     Indication: Blood pressure increased
  24. MOMETASONE [Suspect]
     Active Substance: MOMETASONE
     Indication: Product used for unknown indication
     Dosage: UNK, THERAPY START DATE:-JUN-2014
  25. CHLORTHALIDONE [Suspect]
     Active Substance: CHLORTHALIDONE
     Indication: Product used for unknown indication
     Dosage: UNK, MAY 2017
  26. DOXAZOSIN MESYLATE [Suspect]
     Active Substance: DOXAZOSIN MESYLATE
     Indication: Product used for unknown indication
     Dosage: UNK, THERAPY START DATE: MAY 2017
  27. ROXITHROMYCIN [Suspect]
     Active Substance: ROXITHROMYCIN
     Indication: Product used for unknown indication
     Dosage: UNK, THERAPY START DATE:-NOV-2011
  28. HYDROCORTISONE BUTYRATE [Suspect]
     Active Substance: HYDROCORTISONE BUTYRATE
     Indication: Product used for unknown indication
     Dosage: UNK, THERAPY START DATE:-JUN-2016
  29. CLINDAMYCIN\CLOTRIMAZOLE [Suspect]
     Active Substance: CLINDAMYCIN\CLOTRIMAZOLE
     Indication: Product used for unknown indication
     Dosage: UNK
  30. FOSFOMYCIN TROMETHAMINE [Suspect]
     Active Substance: FOSFOMYCIN TROMETHAMINE
     Indication: Product used for unknown indication
     Dosage: UNK, THERAPY START DATE:-OCT-2012
  31. LERCANIDIPINE [Suspect]
     Active Substance: LERCANIDIPINE
     Indication: Product used for unknown indication
     Dosage: UNK, THERAPY START DATE:-FEB-2017
  32. NYSTATIN [Suspect]
     Active Substance: NYSTATIN
     Indication: Product used for unknown indication
     Dosage: UNK
  33. NYSTATIN [Suspect]
     Active Substance: NYSTATIN
     Dosage: UNK, THERAPY START DATE:-MAY-2018
  34. HYDROCHLOROTHIAZIDE\VALSARTAN [Suspect]
     Active Substance: HYDROCHLOROTHIAZIDE\VALSARTAN
     Indication: Product used for unknown indication
     Dosage: UNK, APR 2012
  35. FLUMETHASONE PIVALATE [Suspect]
     Active Substance: FLUMETHASONE PIVALATE
     Indication: Product used for unknown indication
     Dosage: UNK, THERAPY START DATE:-JAN-2014
  36. METAMIZOLE [Suspect]
     Active Substance: METAMIZOLE
     Indication: Product used for unknown indication
     Dosage: UNK, THERAPY START DATE:-JUN-2017
  37. CIPROFLOXACIN HYDROCHLORIDE [Suspect]
     Active Substance: CIPROFLOXACIN HYDROCHLORIDE
     Indication: Product used for unknown indication
     Dosage: UNK, THERAPY START DATE:-NOV-2011
  38. SPIRONOLACTONE [Suspect]
     Active Substance: SPIRONOLACTONE
     Indication: Product used for unknown indication
     Dosage: UNK, THERAPY START DATE:-FEB-2017
  39. CLINDAMYCIN HYDROCHLORIDE [Suspect]
     Active Substance: CLINDAMYCIN HYDROCHLORIDE
     Indication: Product used for unknown indication
     Dosage: UNK, THERAPY START DATE: -AUG-2013
  40. IBUPROFEN [Suspect]
     Active Substance: IBUPROFEN
     Indication: Product used for unknown indication
     Dosage: UNK
  41. CLINDAGEL [Suspect]
     Active Substance: CLINDAMYCIN PHOSPHATE
     Indication: Product used for unknown indication
     Dosage: UNK
  42. DOXAZOSIN MESYLATE [Suspect]
     Active Substance: DOXAZOSIN MESYLATE
     Indication: Product used for unknown indication
     Dosage: UNK, THERAPY START DATE:-FEB-2017
  43. METAMIZOLE SODIUM [Suspect]
     Active Substance: METAMIZOLE SODIUM
     Indication: Product used for unknown indication
     Dosage: UNK, JUN 2017
  44. TRIMETHOPRIM [Suspect]
     Active Substance: TRIMETHOPRIM
     Indication: Product used for unknown indication
     Dosage: UNK
  45. NEBIVOLOL [Suspect]
     Active Substance: NEBIVOLOL
     Indication: Product used for unknown indication
     Dosage: UNK, THERAPY START DATE:-FEB-2014
     Dates: start: 201402
  46. IBUPROFEN SODIUM [Suspect]
     Active Substance: IBUPROFEN SODIUM
     Indication: Product used for unknown indication
     Dosage: UNK, THERAPY START DATE: 20-JUL-2000
  47. EUTHYROX [Suspect]
     Active Substance: LEVOTHYROXINE SODIUM
     Indication: Product used for unknown indication
     Dosage: UNK, THERAPY START DATE 20-APR-2000
  48. EFEROX [Suspect]
     Active Substance: LEVOTHYROXINE SODIUM
     Indication: Product used for unknown indication
     Dosage: UNK, THERAPY START DATE:-DEC 2012
  49. ROXITHROMYCIN [Suspect]
     Active Substance: ROXITHROMYCIN
     Indication: Product used for unknown indication
     Dosage: UNK
  50. CODEINE PHOSPHATE [Suspect]
     Active Substance: CODEINE PHOSPHATE
     Indication: Product used for unknown indication
     Dosage: UNK
  51. MINOXIDIL [Suspect]
     Active Substance: MINOXIDIL
     Indication: Product used for unknown indication
     Dosage: UNK
  52. CEFPODOXIME PROXETIL [Suspect]
     Active Substance: CEFPODOXIME PROXETIL
     Indication: Product used for unknown indication
     Dosage: UNK, THERAPY START DATE:-MAY-2016
  53. AZITHROMYCIN [Suspect]
     Active Substance: AZITHROMYCIN
     Indication: Product used for unknown indication
     Dosage: UNK
  54. LEVOTHYROXINE SODIUM [Suspect]
     Active Substance: LEVOTHYROXINE SODIUM
     Indication: Product used for unknown indication
     Dosage: UNK, THERAPY START DATE:-APR-2012
  55. CIPROFLOXACIN HYDROCHLORIDE [Suspect]
     Active Substance: CIPROFLOXACIN HYDROCHLORIDE
     Indication: Product used for unknown indication
     Dosage: UNK
  56. MOMETASONE [Suspect]
     Active Substance: MOMETASONE
     Indication: Product used for unknown indication
     Dosage: UNK, JUN 2014
  57. LEVOTHYROXINE SODIUM [Suspect]
     Active Substance: LEVOTHYROXINE SODIUM
     Indication: Product used for unknown indication
     Dosage: UNK, THERAPY START DATE:-MAY-2013
  58. SULFAMETHOXAZOLE\TRIMETHOPRIM [Suspect]
     Active Substance: SULFAMETHOXAZOLE\TRIMETHOPRIM
     Indication: Product used for unknown indication
     Dosage: UNK
  59. VALSARTAN [Suspect]
     Active Substance: VALSARTAN
     Indication: Hypertension
     Dosage: UNK, START DATE: JAN 2012
  60. SULFAMETHOXAZOLE\TRIMETHOPRIM [Suspect]
     Active Substance: SULFAMETHOXAZOLE\TRIMETHOPRIM
     Indication: Product used for unknown indication
     Dosage: UNK, THERAPY START DATE:-OCT-2014
     Dates: start: 201410
  61. AMPICILLIN SODIUM [Suspect]
     Active Substance: AMPICILLIN SODIUM
     Indication: Product used for unknown indication
     Dosage: UNK

REACTIONS (1)
  - Bladder transitional cell carcinoma [Recovered/Resolved]

NARRATIVE: CASE EVENT DATE: 20000320
